FAERS Safety Report 9556078 (Version 1)
Quarter: 2013Q3

REPORT INFORMATION
  Report Type: Spontaneous
  Country: US (occurrence: None)
  Receive Date: 20130724
  Receipt Date: 20130724
  Transmission Date: 20140515
  Serious: Yes (Other)
  Sender: FDA-Public Use
  Company Number: PHEH2013US006836

PATIENT
  Age: 37 Year
  Sex: Female

DRUGS (4)
  1. GILENYA (FINGOLIMOD) CAPSULE, 0.5MG [Suspect]
     Indication: MULTIPLE SCLEROSIS
     Route: 048
     Dates: start: 20130320
  2. SERTRALINE (SERTRALINE) [Concomitant]
  3. GABAPENTIN (GABAPENTIN) [Concomitant]
  4. ATENOLOL (ATENOLOL) [Concomitant]

REACTIONS (5)
  - Sinus bradycardia [None]
  - Chest pain [None]
  - Fatigue [None]
  - Tremor [None]
  - Asthenia [None]
